FAERS Safety Report 7642034-X (Version None)
Quarter: 2011Q3

REPORT INFORMATION
  Report Type: 
  Country: None (occurrence: None)
  Receive Date: 20110728
  Receipt Date: 20110722
  Transmission Date: 20111222
  Serious: Yes (Other)
  Sender: FDA-Public Use
  Company Number: JP-MERCK-1107USA02094

PATIENT
  Age: 24 Year
  Sex: Female

DRUGS (2)
  1. PEPCID [Suspect]
     Indication: DRUG ERUPTION
     Route: 048
  2. PREDNISOLONE [Concomitant]
     Indication: DRUG ERUPTION
     Route: 065

REACTIONS (1)
  - RHABDOMYOLYSIS [None]
